FAERS Safety Report 12614292 (Version 3)
Quarter: 2017Q1

REPORT INFORMATION
  Report Type: Spontaneous
  Country: US (occurrence: US)
  Receive Date: 20160802
  Receipt Date: 20170223
  Transmission Date: 20170428
  Serious: Yes (Hospitalization, Other)
  Sender: FDA-Public Use
  Company Number: US-PFIZER INC-2016368744

PATIENT
  Age: 76 Year
  Sex: Female

DRUGS (4)
  1. LETROZOLE. [Suspect]
     Active Substance: LETROZOLE
     Indication: BREAST CANCER
     Dosage: 2.5 MG, 1X/DAY
     Dates: start: 201605
  2. IBRANCE [Suspect]
     Active Substance: PALBOCICLIB
     Dosage: 125 MG, CYCLIC (ONCE A DAY FOR 21 DAYS)
     Dates: start: 20160526
  3. IBRANCE [Suspect]
     Active Substance: PALBOCICLIB
     Indication: BREAST CANCER
     Dosage: 125 MG, 1X/DAY (X21DAY)
     Route: 048
     Dates: start: 20160411
  4. IBRANCE [Suspect]
     Active Substance: PALBOCICLIB
     Dosage: 125 MG, CYCLIC, (ONCE DAILY, 1-21 EVERY 28 DAYS)
     Route: 048
     Dates: start: 20160419

REACTIONS (8)
  - Dry mouth [Not Recovered/Not Resolved]
  - Stomatitis [Recovered/Resolved]
  - Pyrexia [Unknown]
  - Ageusia [Unknown]
  - Malaise [Unknown]
  - Oropharyngeal pain [Unknown]
  - Immunosuppression [Unknown]
  - Cough [Unknown]

NARRATIVE: CASE EVENT DATE: 20160610
